FAERS Safety Report 18129760 (Version 1)
Quarter: 2020Q3

REPORT INFORMATION
  Report Type: Spontaneous
  Country: US (occurrence: US)
  Receive Date: 20200810
  Receipt Date: 20200810
  Transmission Date: 20201103
  Serious: No
  Sender: FDA-Public Use
  Company Number: US-PERRIGO-20US000187

PATIENT
  Sex: Female

DRUGS (2)
  1. LORATADINE. [Suspect]
     Active Substance: LORATADINE
     Indication: OROPHARYNGEAL PAIN
  2. LORATADINE. [Suspect]
     Active Substance: LORATADINE
     Indication: MIDDLE EAR EFFUSION
     Dosage: 10 MG, UNKNOWN
     Route: 048
     Dates: start: 202001

REACTIONS (3)
  - Off label use [Unknown]
  - Drug effective for unapproved indication [Unknown]
  - Somnolence [Unknown]

NARRATIVE: CASE EVENT DATE: 202001
